FAERS Safety Report 7525135-6 (Version None)
Quarter: 2011Q2

REPORT INFORMATION
  Report Type: 
  Country: None (occurrence: None)
  Receive Date: 20110606
  Receipt Date: 20110525
  Transmission Date: 20111010
  Serious: Yes (Hospitalization)
  Sender: FDA-Public Use
  Company Number: US-SANOFI-AVENTIS-2011SA034031

PATIENT
  Age: 60 Year
  Sex: Male
  Weight: 127.3 kg

DRUGS (12)
  1. AVALIDE [Concomitant]
     Dosage: 300-25 MG DAILY DOSE
     Route: 048
     Dates: start: 20100101
  2. DRONEDARONE HCL [Suspect]
     Indication: ATRIAL FIBRILLATION
     Route: 065
     Dates: start: 20110429, end: 20110503
  3. CARVEDILOL [Concomitant]
     Dates: start: 20100101
  4. BLINDED THERAPY [Suspect]
     Route: 065
     Dates: start: 20110506, end: 20110522
  5. ANDROGEL [Concomitant]
     Dosage: 25/2.5 GM DAILY DOSE
     Route: 061
     Dates: start: 20100101
  6. ASPIRIN [Concomitant]
     Dates: start: 20000101
  7. TERAZOSIN [Concomitant]
     Route: 048
     Dates: start: 20020529
  8. BLINDED THERAPY [Suspect]
     Route: 065
     Dates: start: 20110506, end: 20110522
  9. AMBIEN [Concomitant]
     Route: 048
     Dates: start: 20000101
  10. POTASSIUM CHLORIDE [Concomitant]
     Route: 048
     Dates: start: 20000101
  11. BLINDED THERAPY [Suspect]
     Route: 065
     Dates: start: 20110429, end: 20110503
  12. CARVEDILOL [Concomitant]
     Route: 048
     Dates: start: 20100101

REACTIONS (1)
  - ATRIAL FLUTTER [None]
